FAERS Safety Report 26046042 (Version 1)
Quarter: 2025Q4

REPORT INFORMATION
  Report Type: Spontaneous
  Country: US (occurrence: US)
  Receive Date: 20251114
  Receipt Date: 20251114
  Transmission Date: 20260119
  Serious: Yes (Other)
  Sender: HIKMA
  Company Number: US-HIKMA PHARMACEUTICALS USA INC.-US-H14001-25-12046

PATIENT
  Age: 35 Year
  Sex: Male

DRUGS (4)
  1. CRENESSITY [Suspect]
     Active Substance: CRINECERFONT
     Indication: Product used for unknown indication
     Dosage: UNKNOWN
     Route: 065
  2. DEXAMETHASONE [Suspect]
     Active Substance: DEXAMETHASONE
     Indication: Product used for unknown indication
     Dosage: UNKNOWN
     Route: 065
  3. PREDNISONE [Suspect]
     Active Substance: PREDNISONE
     Dosage: 6 GRAM
     Route: 065
  4. PREDNISONE [Suspect]
     Active Substance: PREDNISONE
     Indication: Product used for unknown indication
     Dosage: 8 GRAM (5 MGS IN THE MORNING, 3 MGS AT NIGHT)
     Route: 065

REACTIONS (5)
  - Gastrointestinal necrosis [Unknown]
  - Dyspepsia [Unknown]
  - Cough [Unknown]
  - Illness [Unknown]
  - Gastrointestinal perforation [Unknown]
